FAERS Safety Report 13013643 (Version 4)
Quarter: 2016Q4

REPORT INFORMATION
  Report Type: Report from Study
  Country: IT (occurrence: IT)
  Receive Date: 20161209
  Receipt Date: 20161215
  Transmission Date: 20170207
  Serious: Yes (Hospitalization)
  Sender: FDA-Public Use
  Company Number: IT-TEVA-716998ACC

PATIENT
  Age: 65 Year
  Sex: Male

DRUGS (8)
  1. TICLOPIDINE [Suspect]
     Active Substance: TICLOPIDINE
     Indication: DRUG ABUSE
     Dosage: 250 MG TOTAL
     Route: 048
     Dates: start: 20140211, end: 20140211
  2. VALDORM - 30 MG CAPSULE - VALEAS SPA INDUSTRIA CHIMICA E FARMACEUTICA [Suspect]
     Active Substance: FLURAZEPAM HYDROCHLORIDE
     Indication: DRUG ABUSE
     Dosage: 30 MG TOTAL
     Route: 048
     Dates: start: 20140211, end: 20140211
  3. BARACLUDE [Suspect]
     Active Substance: ENTECAVIR
     Indication: DRUG ABUSE
     Dosage: 5 MG TOTAL
     Route: 048
     Dates: start: 20140211, end: 20140211
  4. GARDENALE - 100 MG COMPRESSE - SANOFI S.P.A. [Suspect]
     Active Substance: PHENOBARBITAL
     Indication: DRUG ABUSE
     Dosage: 100 MG TOTAL
     Route: 048
     Dates: start: 20140211, end: 20140211
  5. CEFOXITIN [Suspect]
     Active Substance: CEFOXITIN SODIUM
     Indication: DRUG ABUSE
     Dosage: 10 MG TOTAL
     Route: 048
     Dates: start: 20140211, end: 20140211
  6. QUETIAPINA ACCORD - 400 MG COMPRESSE A RILASCIO PROLUNGATO - ACCORD HE [Suspect]
     Active Substance: QUETIAPINE FUMARATE
     Indication: DRUG ABUSE
     Dosage: 400 MG TOTAL
     Route: 048
     Dates: start: 20140211, end: 20140211
  7. LAMOTRIGINE. [Suspect]
     Active Substance: LAMOTRIGINE
     Indication: DRUG ABUSE
     Dosage: 50 MG TOTAL
     Route: 048
     Dates: start: 20140211, end: 20140211
  8. AMISULPRIDE [Suspect]
     Active Substance: AMISULPRIDE
     Indication: DRUG ABUSE
     Dosage: 50 MG TOTAL
     Route: 048
     Dates: start: 20140211, end: 20140211

REACTIONS (5)
  - Drug abuse [Unknown]
  - Psychomotor retardation [Recovering/Resolving]
  - Drug abuse [Recovering/Resolving]
  - Intentional self-injury [Recovering/Resolving]
  - Sopor [Recovering/Resolving]

NARRATIVE: CASE EVENT DATE: 20140211
